FAERS Safety Report 5409587-3 (Version None)
Quarter: 2007Q3

REPORT INFORMATION
  Report Type: 
  Country: None (occurrence: None)
  Receive Date: 20070809
  Receipt Date: 20070807
  Transmission Date: 20080115
  Serious: Yes (Hospitalization)
  Sender: FDA-Public Use
  Company Number: DE-AVENTIS-200711597DE

PATIENT
  Age: 47 Year
  Sex: Male

DRUGS (1)
  1. ARAVA [Suspect]
     Dosage: DOSE: 10 OR 20 MG EVERY THREE DAYS
     Route: 048
     Dates: start: 20020901

REACTIONS (1)
  - BLOOD URINE PRESENT [None]
